FAERS Safety Report 21660734 (Version 1)
Quarter: 2022Q4

REPORT INFORMATION
  Report Type: Spontaneous
  Country: ES (occurrence: None)
  Receive Date: 20221130
  Receipt Date: 20221130
  Transmission Date: 20230112
  Serious: Yes (Hospitalization)
  Sender: FDA-Public Use
  Company Number: ES-ROCHE-3227539

PATIENT
  Age: 60 Year
  Sex: Female

DRUGS (10)
  1. CLONAZEPAM [Suspect]
     Active Substance: CLONAZEPAM
     Indication: Product used for unknown indication
     Route: 048
     Dates: start: 20040709
  2. VENLAFAXINE [Suspect]
     Active Substance: VENLAFAXINE HYDROCHLORIDE
     Indication: Product used for unknown indication
     Route: 048
     Dates: start: 20130321
  3. ASPIRIN [Concomitant]
     Active Substance: ASPIRIN
     Dates: start: 20110322
  4. ATORVASTATIN [Concomitant]
     Active Substance: ATORVASTATIN
  5. ENALAPRIL [Concomitant]
     Active Substance: ENALAPRIL
  6. LEVETIRACETAM [Concomitant]
     Active Substance: LEVETIRACETAM
  7. METFORMIN HYDROCHLORIDE [Concomitant]
     Active Substance: METFORMIN HYDROCHLORIDE
  8. FERROUS SULFATE [Concomitant]
     Active Substance: FERROUS SULFATE
  9. OMEPRAZOLE [Concomitant]
     Active Substance: OMEPRAZOLE
  10. INSULIN HUMAN [Concomitant]
     Active Substance: INSULIN HUMAN

REACTIONS (3)
  - Inappropriate antidiuretic hormone secretion [Recovered/Resolved]
  - Hyponatraemia [Recovered/Resolved]
  - Urinary tract infection [Recovered/Resolved]

NARRATIVE: CASE EVENT DATE: 20221001
